FAERS Safety Report 8118816-7 (Version None)
Quarter: 2012Q1

REPORT INFORMATION
  Report Type: 
  Country: None (occurrence: None)
  Receive Date: 20120207
  Receipt Date: 20120124
  Transmission Date: 20120608
  Serious: Yes (Hospitalization, Other)
  Sender: FDA-Public Use
  Company Number: GB-JNJFOC-20080402600

PATIENT
  Sex: Male
  Weight: 65 kg

DRUGS (7)
  1. ACETAMINOPHEN WITH PROPOXYPHENE HCL TAB [Concomitant]
  2. METHOTREXATE [Concomitant]
     Dates: end: 20070415
  3. REMICADE [Suspect]
     Route: 042
     Dates: start: 20070125
  4. FOLIC ACID [Concomitant]
  5. FLURBIPROFEN [Concomitant]
  6. VITAMIN B-12 [Concomitant]
  7. REMICADE [Suspect]
     Indication: RHEUMATOID ARTHRITIS
     Route: 042
     Dates: start: 20020829

REACTIONS (1)
  - LUNG SQUAMOUS CELL CARCINOMA STAGE UNSPECIFIED [None]
